FAERS Safety Report 6553629-9 (Version None)
Quarter: 2010Q1

REPORT INFORMATION
  Report Type: 
  Country: None (occurrence: None)
  Receive Date: 20100122
  Receipt Date: 20100112
  Transmission Date: 20100710
  Serious: No
  Sender: FDA-Public Use
  Company Number: 2010000151

PATIENT
  Sex: Male

DRUGS (3)
  1. FENTORA [Suspect]
     Indication: FIBROMYALGIA
     Dosage: (400 MCG, EVERY 4-6 HOURS PRN), BU
     Route: 002
     Dates: start: 20070101
  2. OXYCONTIN [Concomitant]
  3. OXYCODONE HCL [Concomitant]

REACTIONS (1)
  - DRUG PRESCRIBING ERROR [None]
